FAERS Safety Report 16973116 (Version 2)
Quarter: 2020Q1

REPORT INFORMATION
  Report Type: Spontaneous
  Country: US (occurrence: US)
  Receive Date: 20191030
  Receipt Date: 20200320
  Transmission Date: 20200409
  Serious: No
  Sender: FDA-Public Use
  Company Number: US-TEVA-2019-US-1127877

PATIENT
  Age: 6 Decade
  Sex: Female

DRUGS (1)
  1. AUSTEDO [Suspect]
     Active Substance: DEUTETRABENAZINE
     Indication: DYSKINESIA
     Dosage: GRADUALLY TITRATED TO A DOSE OF 9 MG AND 6 MG DAILY
     Route: 048
     Dates: start: 2018

REACTIONS (6)
  - Product use in unapproved indication [Unknown]
  - Tic [Unknown]
  - Dyskinesia [Unknown]
  - Dysphemia [Unknown]
  - Therapeutic response unexpected [Unknown]
  - Product dose omission [Unknown]
